FAERS Safety Report 8242920-6 (Version None)
Quarter: 2012Q1

REPORT INFORMATION
  Report Type: 
  Country: None (occurrence: None)
  Receive Date: 20120329
  Receipt Date: 20120329
  Transmission Date: 20120608
  Serious: Yes (Hospitalization)
  Sender: FDA-Public Use
  Company Number: None

PATIENT
  Age: 66 Year
  Sex: Female
  Weight: 90.26 kg

DRUGS (22)
  1. METOPROLOL SUCCINATE [Concomitant]
  2. MS CONTIN [Concomitant]
  3. FOLIC ACID [Concomitant]
  4. ZOFRAN [Concomitant]
  5. AMBIEN [Concomitant]
     Route: 048
  6. REGULAR INSULIN [Concomitant]
  7. METFORMIN HCL [Concomitant]
  8. VITAMIN D [Concomitant]
  9. ROCEPHIN [Concomitant]
  10. TYLENOL PRN [Concomitant]
     Route: 048
  11. MAGNESIUM HYDROXIDE TAB [Concomitant]
     Route: 048
  12. COLACE [Concomitant]
     Route: 048
  13. LR [Concomitant]
     Route: 042
  14. MORPHINE [Concomitant]
  15. FERROUS SULFATE TAB [Concomitant]
  16. TORADOL [Concomitant]
  17. FLEETS ENEMA [Concomitant]
  18. LISINOPRIL [Concomitant]
  19. ZOLOFT [Concomitant]
  20. XARELTO [Suspect]
     Indication: PROPHYLAXIS
     Dosage: 10 MG
     Route: 048
     Dates: start: 20120225, end: 20120229
  21. GABAPENTIN [Concomitant]
  22. PRAVACHOL [Concomitant]

REACTIONS (3)
  - PAIN IN EXTREMITY [None]
  - VENOUS THROMBOSIS [None]
  - TREATMENT FAILURE [None]
